APPROVED DRUG PRODUCT: STERILE WATER FOR INJECTION
Active Ingredient: STERILE WATER FOR INJECTION
Strength: 100% (5ML)
Dosage Form/Route: LIQUID;N/A
Application: A211222 | Product #001 | TE Code: AP
Applicant: NEPHRON PHARMACEUTICALS CORPORATION
Approved: Feb 10, 2021 | RLD: No | RS: No | Type: RX